FAERS Safety Report 20622055 (Version 1)
Quarter: 2022Q1

REPORT INFORMATION
  Report Type: Spontaneous
  Country: US (occurrence: US)
  Receive Date: 20220322
  Receipt Date: 20220322
  Transmission Date: 20220423
  Serious: No
  Sender: FDA-Public Use
  Company Number: US-NOVOPROD-894306

PATIENT
  Age: 30 Year
  Sex: Female
  Weight: 72.574 kg

DRUGS (1)
  1. WEGOVY [Suspect]
     Active Substance: SEMAGLUTIDE
     Indication: Weight control
     Dosage: UNK
     Route: 058
     Dates: start: 20211214

REACTIONS (3)
  - Hypophagia [Not Recovered/Not Resolved]
  - Malaise [Unknown]
  - Nausea [Unknown]
